FAERS Safety Report 7568727-0 (Version None)
Quarter: 2011Q2

REPORT INFORMATION
  Report Type: 
  Country: None (occurrence: None)
  Receive Date: 20110617
  Receipt Date: 20110614
  Transmission Date: 20111010
  Serious: Yes (Death, Hospitalization)
  Sender: FDA-Public Use
  Company Number: GRT 2011-12576

PATIENT
  Age: 57 Year
  Sex: Male
  Weight: 140 kg

DRUGS (5)
  1. LASIX [Concomitant]
  2. TORVAST (ATROVASTATIN CALCIUM) [Concomitant]
  3. CARDIOASPRIRIN (ACETYLSALICYLIC ACID) [Concomitant]
  4. LIDODERM [Suspect]
     Dosage: 2 PATCHES A DAY
     Dates: start: 20101128, end: 20101224
  5. INSULIN [Concomitant]

REACTIONS (2)
  - RENAL FAILURE [None]
  - ACUTE RESPIRATORY FAILURE [None]
